FAERS Safety Report 9423807 (Version 1)
Quarter: 2013Q3

REPORT INFORMATION
  Report Type: Report from Study
  Country: FR (occurrence: FR)
  Receive Date: 20130729
  Receipt Date: 20130729
  Transmission Date: 20140515
  Serious: Yes (Death)
  Sender: FDA-Public Use
  Company Number: FR-ROCHE-1253147

PATIENT
  Age: 54 Year
  Sex: Male

DRUGS (4)
  1. MYCOPHENOLATE MOFETIL [Suspect]
     Indication: RENAL TRANSPLANT
     Route: 048
  2. TACROLIMUS [Suspect]
     Indication: RENAL TRANSPLANT
     Route: 048
  3. ALEFACEPT [Suspect]
     Indication: RENAL TRANSPLANT
     Route: 040
  4. ALEFACEPT [Suspect]
     Route: 058

REACTIONS (1)
  - Lung neoplasm malignant [Fatal]
